FAERS Safety Report 23144940 (Version 1)
Quarter: 2023Q4

REPORT INFORMATION
  Report Type: Spontaneous
  Country: CN (occurrence: None)
  Receive Date: 20231103
  Receipt Date: 20231103
  Transmission Date: 20240110
  Serious: Yes (Hospitalization, Other)
  Sender: FDA-Public Use
  Company Number: 2023A236314

PATIENT
  Age: 23246 Day
  Sex: Male
  Weight: 82 kg

DRUGS (4)
  1. IMFINZI [Suspect]
     Active Substance: DURVALUMAB
     Indication: Non-small cell lung cancer stage III
     Dosage: 1500MG/PERIOD1500.0MG UNKNOWN
     Dates: start: 20230311
  2. IMFINZI [Suspect]
     Active Substance: DURVALUMAB
     Indication: Non-small cell lung cancer stage III
     Dosage: UNKNOWN
     Dates: start: 20231002
  3. IMFINZI [Suspect]
     Active Substance: DURVALUMAB
     Indication: Non-small cell lung cancer stage III
     Dosage: UNKNOWN
     Dates: start: 20231030
  4. NINTEDANIB ESYLATE [Concomitant]
     Active Substance: NINTEDANIB ESYLATE
     Indication: Pulmonary fibrosis
     Dosage: UNNKNOWN
     Route: 048

REACTIONS (4)
  - Pulmonary fibrosis [Unknown]
  - Pneumonia [Recovered/Resolved]
  - Immunodeficiency [Recovered/Resolved]
  - Pulmonary pain [Unknown]

NARRATIVE: CASE EVENT DATE: 20230802
